FAERS Safety Report 23857774 (Version 2)
Quarter: 2024Q3

REPORT INFORMATION
  Report Type: Spontaneous
  Country: CA (occurrence: CA)
  Receive Date: 20240515
  Receipt Date: 20240925
  Transmission Date: 20241016
  Serious: Yes (Death)
  Sender: HLS THERAPEUTICS
  Company Number: CA-HLS-202401207

PATIENT
  Age: 64 Year
  Sex: Male

DRUGS (10)
  1. CLOZAPINE [Suspect]
     Active Substance: CLOZAPINE
     Indication: Schizophrenia
     Dosage: 4 EVERY 1 DAYS
     Route: 065
  2. CLOZAPINE [Suspect]
     Active Substance: CLOZAPINE
     Indication: Schizophrenia
     Dosage: TABLETS DOSAGE FORM
     Route: 065
  3. ABILIFY [Concomitant]
     Active Substance: ARIPIPRAZOLE
     Dosage: TABLETS DOSAGE FORM
     Route: 065
  4. ATIVAN [Concomitant]
     Active Substance: LORAZEPAM
     Indication: Schizophrenia
     Dosage: 2 EVERY 1 DAYS?AMOUNT: 0.5 MILLIGRAM?NOT SPECIFIED DOSAGE FORM
     Route: 065
  5. ATIVAN [Concomitant]
     Active Substance: LORAZEPAM
     Indication: Schizophrenia
     Dosage: 4 EVERY 1 DAYS?TABLETS DOSAGE FORM
     Route: 065
  6. DUTASTERIDE [Concomitant]
     Active Substance: DUTASTERIDE
     Dosage: 1 EVERY 1 DAYS?AMOUNT: 0.5 MILLIGRAM?CAPSULES DOSAGE FORM
     Route: 065
  7. FLUTICASONE [Concomitant]
     Active Substance: FLUTICASONE
     Dosage: 1 EVERY 1 DAYS?AMOUNT: 100 MILLIGRAM
     Route: 065
  8. HALDOL [Concomitant]
     Active Substance: HALOPERIDOL
     Dosage: NOT SPECIFIED DOSAGE FORM
     Route: 065
  9. TAMSULOSIN [Concomitant]
     Active Substance: TAMSULOSIN
     Dosage: NOT SPECIFIED DOSAGE FORM
     Route: 065
  10. DIVALPROEX SODIUM [Concomitant]
     Active Substance: DIVALPROEX SODIUM
     Dosage: 2 EVERY 1 DAYS?AMOUNT: 500 MILLIGRAM
     Route: 048

REACTIONS (1)
  - Death [Fatal]
